FAERS Safety Report 5065578-6 (Version None)
Quarter: 2006Q3

REPORT INFORMATION
  Report Type: 
  Country: None (occurrence: None)
  Receive Date: 20060714
  Receipt Date: 20060515
  Transmission Date: 20061208
  Serious: No
  Sender: FDA-Public Use
  Company Number: 2006SP002048

PATIENT
  Age: 62 Year
  Sex: Female

DRUGS (8)
  1. LUNESTA [Suspect]
     Indication: INSOMNIA
     Dosage: 2 MG;ORAL
     Route: 048
     Dates: start: 20060401, end: 20060513
  2. PLAQUENIL [Concomitant]
  3. DICLOFENAC [Concomitant]
  4. ENBREL [Concomitant]
  5. FOLIC ACID [Concomitant]
  6. LEVOTHYROXINE SODIUM [Concomitant]
  7. METHOTREXATE [Concomitant]
  8. ESTRADIOL INJ [Concomitant]

REACTIONS (1)
  - DYSGEUSIA [None]
